FAERS Safety Report 13362979 (Version 3)
Quarter: 2017Q3

REPORT INFORMATION
  Report Type: Report from Study
  Country: US (occurrence: US)
  Receive Date: 20170323
  Receipt Date: 20170713
  Transmission Date: 20171127
  Serious: Yes (Other)
  Sender: FDA-Public Use
  Company Number: US-SA-2017SA044701

PATIENT
  Age: 35 Year
  Sex: Female

DRUGS (6)
  1. TYLENOL [Concomitant]
     Active Substance: ACETAMINOPHEN
     Indication: BONE PAIN
  2. ARMOUR THYROID [Concomitant]
     Active Substance: THYROID, PORCINE
     Indication: THYROID DISORDER
  3. ACYCLOVIR. [Concomitant]
     Active Substance: ACYCLOVIR
  4. ZANTAC [Concomitant]
     Active Substance: RANITIDINE HYDROCHLORIDE
  5. ZYRTEC [Concomitant]
     Active Substance: CETIRIZINE HYDROCHLORIDE
  6. LEMTRADA [Suspect]
     Active Substance: ALEMTUZUMAB
     Indication: MULTIPLE SCLEROSIS
     Route: 041
     Dates: start: 20170220, end: 20170224

REACTIONS (4)
  - Hepatic enzyme increased [Not Recovered/Not Resolved]
  - Urticaria [Recovered/Resolved]
  - Rectal haemorrhage [Recovered/Resolved]
  - Reading disorder [Unknown]

NARRATIVE: CASE EVENT DATE: 20170224
